FAERS Safety Report 20896452 (Version 1)
Quarter: 2022Q2

REPORT INFORMATION
  Report Type: Spontaneous
  Country: US (occurrence: US)
  Receive Date: 20220531
  Receipt Date: 20220531
  Transmission Date: 20220721
  Serious: Yes (Hospitalization)
  Sender: FDA-Public Use
  Company Number: US-BoehringerIngelheim-2022-BI-173666

PATIENT

DRUGS (1)
  1. COMBIVENT RESPIMAT [Suspect]
     Active Substance: ALBUTEROL SULFATE\IPRATROPIUM BROMIDE
     Indication: Product used for unknown indication
     Dosage: INHALATION AEROSOL SOLUTION 20-100 MCG/ACT
     Route: 055

REACTIONS (3)
  - Foot fracture [Unknown]
  - Rib fracture [Unknown]
  - Nephrectomy [Unknown]
